FAERS Safety Report 7650229-4 (Version None)
Quarter: 2011Q3

REPORT INFORMATION
  Report Type: 
  Country: None (occurrence: None)
  Receive Date: 20110802
  Receipt Date: 20110719
  Transmission Date: 20111222
  Serious: Yes (Other)
  Sender: FDA-Public Use
  Company Number: PL-MYLANLABS-2011S1015178

PATIENT
  Age: 40 Year
  Sex: Female

DRUGS (1)
  1. AZATHIOPRINE [Suspect]
     Indication: CROHN'S DISEASE
     Dosage: 100MG DAILY (2 MG/KG)
     Route: 065

REACTIONS (1)
  - NODULAR REGENERATIVE HYPERPLASIA [None]
